FAERS Safety Report 4620442-9 (Version None)
Quarter: 2005Q1

REPORT INFORMATION
  Report Type: 
  Country: None (occurrence: None)
  Receive Date: 20050324
  Receipt Date: 20050228
  Transmission Date: 20050727
  Serious: Yes (Other)
  Sender: FDA-Public Use
  Company Number: 001-05-0228

PATIENT
  Age: 52 Year
  Sex: Female
  Weight: 60.782 kg

DRUGS (1)
  1. CHLORHEXIDINE GLUCONATE [Suspect]
     Indication: GINGIVITIS
     Dosage: ORAL, BEFORE BED
     Route: 048
     Dates: start: 20050106

REACTIONS (1)
  - GLOSSODYNIA [None]
